FAERS Safety Report 13404904 (Version 1)
Quarter: 2017Q2

REPORT INFORMATION
  Report Type: Spontaneous
  Country: US (occurrence: US)
  Receive Date: 20170405
  Receipt Date: 20170405
  Transmission Date: 20170830
  Serious: Yes (Hospitalization)
  Sender: FDA-Public Use
  Company Number: US-PFIZER INC-2017147392

PATIENT
  Sex: Female

DRUGS (1)
  1. XELJANZ XR [Suspect]
     Active Substance: TOFACITINIB CITRATE
     Dosage: 11 MG, DAILY

REACTIONS (14)
  - Pneumonia [Unknown]
  - Musculoskeletal stiffness [Unknown]
  - Fatigue [Unknown]
  - Dyspnoea [Unknown]
  - Dry eye [Unknown]
  - Hypoaesthesia [Unknown]
  - Muscular weakness [Unknown]
  - Back pain [Unknown]
  - Headache [Unknown]
  - Dry mouth [Unknown]
  - Sleep disorder [Unknown]
  - Anxiety [Unknown]
  - Poor quality sleep [Unknown]
  - Depression [Unknown]
